FAERS Safety Report 17351005 (Version 1)
Quarter: 2020Q1

REPORT INFORMATION
  Report Type: Spontaneous
  Country: US (occurrence: US)
  Receive Date: 20200130
  Receipt Date: 20200130
  Transmission Date: 20200409
  Serious: No
  Sender: FDA-Public Use
  Company Number: NVSC2020US023334

PATIENT
  Sex: Male

DRUGS (4)
  1. ZADITOR [Suspect]
     Active Substance: KETOTIFEN FUMARATE
     Indication: OCULAR HYPERAEMIA
     Route: 065
  2. OMNIPRED [Suspect]
     Active Substance: PREDNISOLONE ACETATE
     Indication: PRODUCT USED FOR UNKNOWN INDICATION
     Dosage: 1 %, QID
     Route: 065
  3. AVODART [Concomitant]
     Active Substance: DUTASTERIDE
     Indication: PRODUCT USED FOR UNKNOWN INDICATION
     Route: 065
  4. ZADITOR [Suspect]
     Active Substance: KETOTIFEN FUMARATE
     Indication: EYE IRRITATION

REACTIONS (6)
  - Dysarthria [Unknown]
  - Balance disorder [Unknown]
  - Muscle spasms [Unknown]
  - Mood altered [Unknown]
  - Irritability [Unknown]
  - Discharge [Unknown]
